FAERS Safety Report 6553216-2 (Version None)
Quarter: 2010Q1

REPORT INFORMATION
  Report Type: 
  Country: None (occurrence: None)
  Receive Date: 20100127
  Receipt Date: 20090612
  Transmission Date: 20100710
  Serious: No
  Sender: FDA-Public Use
  Company Number: A0776185A

PATIENT
  Age: 54 Year
  Sex: Female
  Weight: 50 kg

DRUGS (6)
  1. IMITREX [Suspect]
     Indication: MIGRAINE
     Dosage: 6MG AS REQUIRED
     Route: 058
     Dates: start: 19920101
  2. LAMICTAL [Suspect]
     Indication: MIGRAINE
     Route: 048
  3. NEURONTIN [Concomitant]
  4. LAMICTAL [Concomitant]
  5. TOPAMAX [Concomitant]
  6. OTHER MEDICATIONS [Concomitant]

REACTIONS (4)
  - DRUG INEFFECTIVE [None]
  - INJECTION SITE PAIN [None]
  - PRODUCT QUALITY ISSUE [None]
  - URTICARIA [None]
